FAERS Safety Report 24288909 (Version 1)
Quarter: 2024Q3

REPORT INFORMATION
  Report Type: Spontaneous
  Country: GB (occurrence: GB)
  Receive Date: 20240906
  Receipt Date: 20240906
  Transmission Date: 20241017
  Serious: Yes (Life-Threatening, Other)
  Sender: CHATTEM
  Company Number: GB-MHRA-TPP6861908C8998550YC1725292539459

PATIENT
  Age: 42 Year
  Sex: Female
  Weight: 75 kg

DRUGS (5)
  1. NASACORT ALLERGY 24HR [Suspect]
     Active Substance: TRIAMCINOLONE ACETONIDE
     Indication: Ill-defined disorder
     Dosage: STRENGTH-40 MG/1ML
     Dates: start: 20230510
  2. GABAPENTIN [Concomitant]
     Active Substance: GABAPENTIN
     Indication: Ill-defined disorder
     Dosage: TAKE ONE 3 TIMES/DAY
     Dates: start: 20240812
  3. AMITRIPTYLINE HYDROCHLORIDE [Concomitant]
     Active Substance: AMITRIPTYLINE HYDROCHLORIDE
     Indication: Ill-defined disorder
     Dosage: TAKE ONE TABLET AT NIGHT TIME
     Dates: start: 20231212
  4. OMEPRAZOLE [Concomitant]
     Active Substance: OMEPRAZOLE
     Indication: Ill-defined disorder
     Dosage: TAKE ONE CAPSULE ONCE A DAY
     Dates: start: 20231212
  5. FERROUS FUMARATE [Concomitant]
     Active Substance: FERROUS FUMARATE
     Indication: Ill-defined disorder
     Dosage: TAKE ONE TABLET ONCE A DAY ON AN EMPTY STOMACH ...
     Dates: start: 20240103, end: 20240812

REACTIONS (1)
  - Anaphylactic reaction [Recovered/Resolved]
